FAERS Safety Report 8551232-2 (Version None)
Quarter: 2012Q3

REPORT INFORMATION
  Report Type: 
  Country: None (occurrence: None)
  Receive Date: 20120730
  Receipt Date: 20120719
  Transmission Date: 20120928
  Serious: Yes (Other)
  Sender: FDA-Public Use
  Company Number: US-ELI_LILLY_AND_COMPANY-US201207006423

PATIENT
  Sex: Female

DRUGS (5)
  1. CHONDROITIN W/GLUCOSAMINE [Concomitant]
     Dosage: UNK
  2. NEXIUM [Concomitant]
     Dosage: UNK
  3. ZOLEDRONIC ACID [Concomitant]
  4. MULTI-VITAMIN [Concomitant]
     Dosage: UNK
  5. FORTEO [Suspect]
     Indication: OSTEOPOROSIS
     Dosage: 20 UG, QD
     Dates: start: 20060101, end: 20070101

REACTIONS (8)
  - BACK PAIN [None]
  - FALL [None]
  - PROTEIN TOTAL ABNORMAL [None]
  - VULVOVAGINAL PAIN [None]
  - MULTIPLE MYELOMA [None]
  - BONE MARROW NECROSIS [None]
  - NEUROPATHY PERIPHERAL [None]
  - PAIN [None]
